FAERS Safety Report 6075348-8 (Version None)
Quarter: 2009Q1

REPORT INFORMATION
  Report Type: 
  Country: None (occurrence: None)
  Receive Date: 20090210
  Receipt Date: 20090130
  Transmission Date: 20090719
  Serious: Yes (Other)
  Sender: FDA-Public Use
  Company Number: IDR-00223

PATIENT
  Age: 68 Year
  Sex: Female
  Weight: 81.6475 kg

DRUGS (4)
  1. INDERAL LA [Suspect]
     Dosage: 80MG, BID, ORAL
     Route: 048
  2. DIGOXIN [Concomitant]
  3. SYNTHROID [Concomitant]
  4. PEPCID [Concomitant]

REACTIONS (3)
  - DIZZINESS [None]
  - PRESYNCOPE [None]
  - VENTRICULAR EXTRASYSTOLES [None]
